FAERS Safety Report 9179469 (Version 1)
Quarter: 2012Q4

REPORT INFORMATION
  Report Type: 
  Country: US (occurrence: US)
  Receive Date: 20121029
  Receipt Date: 20121029
  Transmission Date: 20130627
  Serious: No
  Sender: FDA-Public Use
  Company Number: US-AMGEN-USASP2012054228

PATIENT
  Age: 43 Year
  Sex: Female
  Weight: 89.8 kg

DRUGS (17)
  1. ENBREL [Suspect]
     Indication: RHEUMATOID ARTHRITIS
     Dosage: 50 mg, qwk
     Route: 058
     Dates: start: 20120824
  2. VITAMIN D /00107901/ [Concomitant]
     Dosage: 50,000 unit, Capsule
  3. WELLBUTRIN XL [Concomitant]
     Dosage: 300 mg, Tablet Extended Release 24 hr
  4. BUPROPION HCL [Concomitant]
     Dosage: 300 mg, Tablet Extended Release 24 hr
  5. MURO 128 [Concomitant]
     Dosage: 5 %, Drops, TWICE DAILY
  6. PRILOSEC                           /00661201/ [Concomitant]
     Dosage: 20 mg, UNK
  7. VITAMIN D3 [Concomitant]
     Dosage: 5,000 unit, Tablet, 1 QD
  8. ZYRTEC [Concomitant]
     Dosage: 10 mg, qd
  9. FOLIC ACID [Concomitant]
     Dosage: 1 mg, Tablet, ONE PO DAILY
  10. ADVIL                              /00044201/ [Concomitant]
     Dosage: 200 mg, Tablet, PO PRN,
  11. ALEVE [Concomitant]
     Dosage: 220 mg, Capsule, PO PRN,
  12. CELEXA                             /00582602/ [Concomitant]
     Dosage: 20 mg, Tablet, ONE PO DAILY
  13. DORZOLAMIDE TIMOLOL [Concomitant]
     Dosage: 2-0.5 %, Drops, PRN
  14. SYNTHROID [Concomitant]
     Dosage: 100 mcg, Tablet, ONE PO DAILY,
  15. METHOTREXATE SODIUM [Concomitant]
     Dosage: 25 mg/mL
  16. PREDNISONE [Concomitant]
     Dosage: 10 mg, 1 to 3 per day as directed
  17. INSULIN [Concomitant]
     Dosage: 1 mL 30 x 5/16^

REACTIONS (2)
  - Nausea [Not Recovered/Not Resolved]
  - Headache [Recovered/Resolved]
